FAERS Safety Report 4734908-4 (Version None)
Quarter: 2005Q3

REPORT INFORMATION
  Report Type: 
  Country: None (occurrence: None)
  Receive Date: 20050729
  Receipt Date: 20050718
  Transmission Date: 20060218
  Serious: Yes (Hospitalization)
  Sender: FDA-Public Use
  Company Number: US-2004-036290

PATIENT
  Age: 38 Year
  Sex: Female
  Weight: 59.9 kg

DRUGS (3)
  1. BETASERON [Suspect]
     Indication: RELAPSING-REMITTING MULTIPLE SCLEROSIS
     Dosage: 8 MIU, EVERY 2D, SUBCUTANEOUS
     Route: 058
     Dates: start: 20041006, end: 20041201
  2. DETROL [Concomitant]
  3. CARDURA [Concomitant]

REACTIONS (3)
  - BLOOD DISORDER [None]
  - DIFFICULTY IN WALKING [None]
  - VISUAL DISTURBANCE [None]
